FAERS Safety Report 5871387-8 (Version None)
Quarter: 2008Q3

REPORT INFORMATION
  Report Type: 
  Country: None (occurrence: None)
  Receive Date: 20080904
  Receipt Date: 20080904
  Transmission Date: 20090109
  Serious: Yes (Other)
  Sender: FDA-Public Use
  Company Number: None

PATIENT
  Age: 88 Year
  Sex: Female
  Weight: 83.9154 kg

DRUGS (1)
  1. SIMVASTATIN [Suspect]
     Indication: DRUG THERAPY CHANGED
     Dosage: 1 TABLET ONCE DAILY
     Dates: start: 20080528

REACTIONS (3)
  - MYALGIA [None]
  - PAIN IN EXTREMITY [None]
  - SKIN DISCOLOURATION [None]
